FAERS Safety Report 5454847-3 (Version None)
Quarter: 2007Q3

REPORT INFORMATION
  Report Type: 
  Country: None (occurrence: None)
  Receive Date: 20070917
  Receipt Date: 20061012
  Transmission Date: 20080115
  Serious: No
  Sender: FDA-Public Use
  Company Number: US-ASTRAZENECA-2006UW19807

PATIENT
  Age: 56 Year
  Sex: Female
  Weight: 62.1 kg

DRUGS (4)
  1. SEROQUEL [Suspect]
     Indication: BIPOLAR DISORDER
     Route: 048
     Dates: start: 20041101
  2. LEXAPRO [Concomitant]
  3. ABILIFY [Concomitant]
  4. LAMICTAL [Concomitant]

REACTIONS (4)
  - CHILLS [None]
  - FATIGUE [None]
  - HYPERHIDROSIS [None]
  - INSOMNIA [None]
